FAERS Safety Report 8209983-5 (Version None)
Quarter: 2012Q1

REPORT INFORMATION
  Report Type: 
  Country: None (occurrence: None)
  Receive Date: 20120314
  Receipt Date: 20110524
  Transmission Date: 20120608
  Serious: No
  Sender: FDA-Public Use
  Company Number: US-ASTRAZENECA-2011SE06461

PATIENT
  Age: 83 Year
  Sex: Male
  Weight: 68 kg

DRUGS (2)
  1. TOPROL-XL [Suspect]
     Indication: CORONARY ARTERY BYPASS
     Route: 048
  2. AVAPRO [Concomitant]
     Indication: CARDIAC DISORDER

REACTIONS (1)
  - NASAL CONGESTION [None]
